FAERS Safety Report 22614981 (Version 2)
Quarter: 2023Q2

REPORT INFORMATION
  Report Type: Report from Study
  Country: BR (occurrence: BR)
  Receive Date: 20230619
  Receipt Date: 20230623
  Transmission Date: 20230721
  Serious: Yes (Death, Life-Threatening, Hospitalization, Other)
  Sender: FDA-Public Use
  Company Number: BR-002147023-NVSC2023BR138545

PATIENT
  Age: 77 Year
  Sex: Female

DRUGS (2)
  1. KISQALI [Suspect]
     Active Substance: RIBOCICLIB
     Indication: Breast cancer female
     Dosage: UNK, (1 TABLET)
     Route: 065
     Dates: start: 20230512
  2. KISQALI [Suspect]
     Active Substance: RIBOCICLIB
     Dosage: UNK, (2)
     Route: 065

REACTIONS (17)
  - Death [Fatal]
  - Platelet count decreased [Recovering/Resolving]
  - Neoplasm malignant [Unknown]
  - Ear haemorrhage [Unknown]
  - Ear pain [Unknown]
  - Metastases to bone [Unknown]
  - Unevaluable event [Unknown]
  - Speech disorder [Unknown]
  - Cholelithiasis [Unknown]
  - Transaminases abnormal [Not Recovered/Not Resolved]
  - Pain [Unknown]
  - Yellow skin [Not Recovered/Not Resolved]
  - Vomiting [Unknown]
  - Laboratory test abnormal [Unknown]
  - Urinary tract infection [Unknown]
  - Anaemia [Unknown]
  - Headache [Unknown]

NARRATIVE: CASE EVENT DATE: 20230615
